FAERS Safety Report 21963948 (Version 2)
Quarter: 2023Q1

REPORT INFORMATION
  Report Type: Report from Study
  Country: IT (occurrence: None)
  Receive Date: 20230207
  Receipt Date: 20230218
  Transmission Date: 20230417
  Serious: Yes (Hospitalization)
  Sender: FDA-Public Use
  Company Number: IT-ROCHE-3278057

PATIENT
  Age: 40 Year
  Sex: Female
  Weight: 60 kg

DRUGS (3)
  1. ATEZOLIZUMAB [Suspect]
     Active Substance: ATEZOLIZUMAB
     Indication: Ovarian neoplasm
     Dosage: ON11-JAN-2023, RECEIVED MOST RECENT DOSE OF ATEZOLIZUMAB PRIOR TO AE AND SAE
     Route: 041
     Dates: start: 20220414
  2. BEVACIZUMAB [Suspect]
     Active Substance: BEVACIZUMAB
     Indication: Ovarian neoplasm
     Dosage: ON 11-JAN-2023, RECEIVED MOST RECENT DOSE 900 MG OF BEVACIZUMAB PRIOR TO AE AND SAE
     Route: 042
     Dates: start: 20220414
  3. CISTIFLUX [Concomitant]
     Route: 048
     Dates: start: 20221215

REACTIONS (1)
  - Pyelonephritis [Recovered/Resolved]

NARRATIVE: CASE EVENT DATE: 20230130
